FAERS Safety Report 16120004 (Version 2)
Quarter: 2019Q2

REPORT INFORMATION
  Report Type: Spontaneous
  Country: JP (occurrence: JP)
  Receive Date: 20190326
  Receipt Date: 20190522
  Transmission Date: 20190711
  Serious: Yes (Hospitalization)
  Sender: FDA-Public Use
  Company Number: JP-009507513-1902JPN001311J

PATIENT
  Age: 63 Year
  Sex: Male
  Weight: 65 kg

DRUGS (5)
  1. TSUMURA JUZENTAIHOTO EXTRACT GRANULES FOR ETHICAL USE [Concomitant]
     Dosage: 2.5 GRAM, BID
     Route: 048
     Dates: start: 2012
  2. LYRICA [Concomitant]
     Active Substance: PREGABALIN
     Indication: PAIN MANAGEMENT
     Dosage: 50 MILLIGRAM, QD
     Route: 048
     Dates: start: 20181009
  3. PROTECADIN [Concomitant]
     Active Substance: LAFUTIDINE
     Dosage: 10 MILLIGRAM, BID
     Route: 048
     Dates: start: 20181106
  4. KEYTRUDA [Suspect]
     Active Substance: PEMBROLIZUMAB
     Indication: NON-SMALL CELL LUNG CANCER
     Dosage: 200 MILLIGRAM, Q3W
     Route: 041
     Dates: start: 20181113, end: 20190115
  5. METHYCOBAL [Concomitant]
     Active Substance: METHYLCOBALAMIN
     Indication: NEUROPATHY PERIPHERAL
     Dosage: 500 MICROGRAM, TID
     Route: 048
     Dates: start: 20181009

REACTIONS (1)
  - Lung disorder [Recovering/Resolving]

NARRATIVE: CASE EVENT DATE: 20190120
